FAERS Safety Report 9066798 (Version 3)
Quarter: 2013Q2

REPORT INFORMATION
  Report Type: Spontaneous
  Country: JP (occurrence: JP)
  Receive Date: 20130214
  Receipt Date: 20130426
  Transmission Date: 20140414
  Serious: Yes (Other)
  Sender: FDA-Public Use
  Company Number: JP-GLAXOSMITHKLINE-B0858647A

PATIENT
  Age: 67 Year
  Sex: Female

DRUGS (7)
  1. FLUTIDE DISKUS [Suspect]
     Indication: ASTHMA
     Dosage: 400MCG TWICE PER DAY
     Route: 055
     Dates: end: 20130109
  2. SEREVENT [Concomitant]
     Indication: ASTHMA
     Dosage: 50MCG TWICE PER DAY
     Route: 055
  3. PREDNISOLONE [Concomitant]
     Indication: ASTHMA
     Dosage: 5MG PER DAY
     Route: 048
  4. NELBON [Concomitant]
     Indication: INSOMNIA
     Dosage: 5MG PER DAY
     Route: 048
  5. AMLODIPINE [Concomitant]
     Indication: HYPERTENSION
     Dosage: 5MG PER DAY
     Route: 048
  6. BLOPRESS [Concomitant]
     Indication: HYPERTENSION
     Dosage: 4MG PER DAY
     Route: 048
  7. PRAVASTATIN SODIUM [Concomitant]
     Indication: DYSLIPIDAEMIA
     Dosage: 10MG PER DAY
     Route: 048

REACTIONS (3)
  - Laryngeal oedema [Recovered/Resolved]
  - Dysphonia [Not Recovered/Not Resolved]
  - Therapeutic response decreased [Unknown]
